FAERS Safety Report 8372781-6 (Version None)
Quarter: 2012Q2

REPORT INFORMATION
  Report Type: 
  Country: None (occurrence: None)
  Receive Date: 20120521
  Receipt Date: 20120515
  Transmission Date: 20120825
  Serious: Yes (Other)
  Sender: FDA-Public Use
  Company Number: US-PFIZER INC-2012118431

PATIENT
  Sex: Female
  Weight: 81.6 kg

DRUGS (3)
  1. LEVOXYL [Suspect]
     Dosage: 112 UG, 1X/DAY
     Route: 048
     Dates: start: 20110101
  2. LEVOXYL [Suspect]
     Dosage: 100 UG, 1X/DAY
     Route: 048
     Dates: end: 20110101
  3. LEVOXYL [Suspect]
     Indication: HYPOTHYROIDISM
     Dosage: 75 UG, 1X/DAY
     Route: 048
     Dates: start: 20040101

REACTIONS (6)
  - ABDOMINAL PAIN UPPER [None]
  - DIARRHOEA [None]
  - COUGH [None]
  - RHINORRHOEA [None]
  - LUNG DISORDER [None]
  - HYPERSENSITIVITY [None]
